FAERS Safety Report 20117862 (Version 1)
Quarter: 2021Q4

REPORT INFORMATION
  Report Type: Spontaneous
  Country: GB (occurrence: GB)
  Receive Date: 20211126
  Receipt Date: 20211126
  Transmission Date: 20220304
  Serious: Yes (Hospitalization)
  Sender: FDA-Public Use
  Company Number: None

PATIENT
  Sex: Male

DRUGS (1)
  1. QUETIAPINE FUMARATE [Suspect]
     Active Substance: QUETIAPINE FUMARATE
     Indication: Ill-defined disorder
     Dosage: 200MG AT NIGHT, ONE AT NIGHT.
     Route: 048

REACTIONS (6)
  - Cerebrovascular accident [Unknown]
  - Medication error [Unknown]
  - Sleep disorder [Unknown]
  - Lethargy [Unknown]
  - Confusional state [Unknown]
  - Decreased appetite [Unknown]
